FAERS Safety Report 12297559 (Version 2)
Quarter: 2016Q3

REPORT INFORMATION
  Report Type: Spontaneous
  Country: US (occurrence: US)
  Receive Date: 20160422
  Receipt Date: 20160727
  Transmission Date: 20161109
  Serious: No
  Sender: FDA-Public Use
  Company Number: US-ASTRAZENECA-2016SE29517

PATIENT
  Age: 25368 Day
  Sex: Female
  Weight: 83.9 kg

DRUGS (4)
  1. PREDNISONE. [Concomitant]
     Active Substance: PREDNISONE
     Indication: ALLERGIC BRONCHITIS
  2. ALBUTEROL. [Concomitant]
     Active Substance: ALBUTEROL
  3. SYMBICORT [Suspect]
     Active Substance: BUDESONIDE\FORMOTEROL FUMARATE DIHYDRATE
     Indication: ALLERGIC BRONCHITIS
     Dosage: 160/4.5MCG, TWO PUFFS TWICE A DAY
     Route: 055
     Dates: start: 201602
  4. SYMBICORT [Suspect]
     Active Substance: BUDESONIDE\FORMOTEROL FUMARATE DIHYDRATE
     Indication: ALLERGIC BRONCHITIS
     Dosage: 160/4.5MCG, TWO PUFFS TWICE A DAY
     Route: 055
     Dates: start: 2014

REACTIONS (3)
  - Circumstance or information capable of leading to medication error [Unknown]
  - Wheezing [Unknown]
  - Device malfunction [Unknown]

NARRATIVE: CASE EVENT DATE: 20160223
